FAERS Safety Report 6395473-1 (Version None)
Quarter: 2009Q4

REPORT INFORMATION
  Report Type: 
  Country: None (occurrence: None)
  Receive Date: 20091009
  Receipt Date: 20090930
  Transmission Date: 20100525
  Serious: Yes (Other)
  Sender: FDA-Public Use
  Company Number: BE-ASTRAZENECA-2009SE17112

PATIENT
  Age: 947 Month
  Sex: Male

DRUGS (10)
  1. CRESTOR [Suspect]
     Indication: HYPERCHOLESTEROLAEMIA
     Route: 048
     Dates: start: 20060501, end: 20070201
  2. CRESTOR [Suspect]
     Indication: CAROTID ARTERIOSCLEROSIS
     Route: 048
     Dates: start: 20060501, end: 20070201
  3. TERAZOSABB [Concomitant]
  4. NASONEX [Concomitant]
  5. ASAFLOW [Concomitant]
  6. AVODART [Concomitant]
  7. PANTOPRAZOLE SODIUM [Concomitant]
  8. SERETIDE [Concomitant]
     Dosage: 25/250
  9. TRITACE [Concomitant]
  10. PLAVIX [Concomitant]

REACTIONS (1)
  - MUSCLE RUPTURE [None]
